FAERS Safety Report 6735858-4 (Version None)
Quarter: 2010Q2

REPORT INFORMATION
  Report Type: 
  Country: None (occurrence: None)
  Receive Date: 20100521
  Receipt Date: 20100519
  Transmission Date: 20101027
  Serious: Yes (Other)
  Sender: FDA-Public Use
  Company Number: A0856342A

PATIENT
  Age: 30 Year
  Sex: Female

DRUGS (2)
  1. WELLBUTRIN SR [Suspect]
     Indication: BIPOLAR II DISORDER
     Dosage: 200MG TWICE PER DAY
     Route: 048
     Dates: start: 20100401, end: 20100420
  2. CONCERTA [Concomitant]

REACTIONS (3)
  - GRAND MAL CONVULSION [None]
  - POSTICTAL STATE [None]
  - TONGUE BITING [None]
